FAERS Safety Report 18279491 (Version 2)
Quarter: 2020Q4

REPORT INFORMATION
  Report Type: Spontaneous
  Country: GE (occurrence: GE)
  Receive Date: 20200917
  Receipt Date: 20201006
  Transmission Date: 20210113
  Serious: Yes (Hospitalization, Other)
  Sender: FDA-Public Use
  Company Number: GE-JNJFOC-20200922411

PATIENT
  Age: 89 Year
  Sex: Female

DRUGS (23)
  1. VEROSPIRON [Concomitant]
     Active Substance: SPIRONOLACTONE
  2. KETILEPT [Concomitant]
     Active Substance: QUETIAPINE FUMARATE
  3. LERCANIDIPINE HYDROCHLORIDE [Concomitant]
     Active Substance: LERCANIDIPINE HYDROCHLORIDE
  4. BERLIPRIL [Concomitant]
     Active Substance: ENALAPRIL MALEATE
  5. ELIQUIS [Concomitant]
     Active Substance: APIXABAN
  6. CARVIDIL [Concomitant]
  7. METOPROLOL. [Concomitant]
     Active Substance: METOPROLOL
  8. ZOK-ZID [Concomitant]
  9. CARBAMAZEPINE A [Concomitant]
     Active Substance: CARBAMAZEPINE
  10. VEROSPIRONE [Concomitant]
     Active Substance: SPIRONOLACTONE
  11. ATORIS [Concomitant]
     Active Substance: ATORVASTATIN CALCIUM
  12. OMEPRAZOLE. [Concomitant]
     Active Substance: OMEPRAZOLE
  13. AMLODIPINE [Concomitant]
     Active Substance: AMLODIPINE BESYLATE
  14. CARDIOMAGNYL [ACETYLSALICYLIC ACID;MAGNESIUM HYDROXIDE] [Concomitant]
  15. LASIX [Concomitant]
     Active Substance: FUROSEMIDE
  16. AMARYL MV [Concomitant]
  17. FRAXIPARINE [Concomitant]
     Active Substance: NADROPARIN CALCIUM
  18. DIGOXIN. [Concomitant]
     Active Substance: DIGOXIN
  19. SODIUM CHLORIDE. [Concomitant]
     Active Substance: SODIUM CHLORIDE
  20. LEFLOCIN [Concomitant]
  21. CIPROFLOXACIN. [Concomitant]
     Active Substance: CIPROFLOXACIN
     Dosage: UNK
  22. XARELTO [Suspect]
     Active Substance: RIVAROXABAN
     Indication: ATRIAL FIBRILLATION
     Dosage: 20 MG
     Route: 048
     Dates: start: 20200710, end: 20200804
  23. AMOXITENK [Concomitant]

REACTIONS (2)
  - Ischaemic stroke [Unknown]
  - Hemiparesis [Recovering/Resolving]

NARRATIVE: CASE EVENT DATE: 20200804
